FAERS Safety Report 8025662 (Version 5)
Quarter: 2013Q4

REPORT INFORMATION
  Report Type: Spontaneous
  Country: US (occurrence: US)
  Receive Date: 20110707
  Receipt Date: 20131028
  Transmission Date: 20140711
  Serious: Yes (Hospitalization, Other)
  Sender: FDA-Public Use
  Company Number: US-ASTRAZENECA-2011SE38982

PATIENT
  Age: 65 Year
  Sex: Female
  Weight: 51.7 kg

DRUGS (18)
  1. NEXIUM [Suspect]
     Indication: BARRETT^S OESOPHAGUS
     Route: 048
  2. NEXIUM [Suspect]
     Indication: BARRETT^S OESOPHAGUS
     Route: 048
     Dates: end: 201306
  3. CRESTOR [Suspect]
     Indication: BLOOD CHOLESTEROL INCREASED
     Route: 048
  4. CRESTOR [Suspect]
     Indication: BLOOD CHOLESTEROL INCREASED
     Dosage: 20 MG OR 40 MG DAILY
     Route: 048
     Dates: start: 2010
  5. CRESTOR [Suspect]
     Indication: BLOOD CHOLESTEROL INCREASED
     Route: 048
  6. SYMBICORT PMDI [Suspect]
     Indication: CHRONIC OBSTRUCTIVE PULMONARY DISEASE
     Dosage: 2 PUFFS, DAILY
     Route: 055
     Dates: start: 2010
  7. SINGULAIR [Concomitant]
  8. OXYGEN [Concomitant]
     Dosage: ON TWO LITERS OF OXYGEN
     Dates: start: 2011
  9. PLAVIX [Concomitant]
     Indication: THROMBOLYSIS
  10. PLAVIX [Concomitant]
     Indication: CARDIAC DISORDER
  11. PROTONIX [Concomitant]
  12. WATER PILLS [Concomitant]
  13. COREG [Concomitant]
  14. INDUR [Concomitant]
     Indication: BLOOD PRESSURE ABNORMAL
  15. INDUR [Concomitant]
     Indication: ANGINA PECTORIS
  16. RANEXA [Concomitant]
     Indication: ANGINA PECTORIS
  17. BREATHING TREATMENTS [Concomitant]
     Dates: start: 201103
  18. UNKNOWN MEDICATIONS [Concomitant]

REACTIONS (21)
  - Skin cancer [Unknown]
  - Breast cancer [Unknown]
  - Dyspnoea [Not Recovered/Not Resolved]
  - Myocardial infarction [Not Recovered/Not Resolved]
  - Transient ischaemic attack [Recovered/Resolved]
  - Cardiac valve disease [Recovered/Resolved with Sequelae]
  - Gait disturbance [Recovered/Resolved]
  - Dysarthria [Recovered/Resolved]
  - Speech disorder [Recovered/Resolved]
  - Tremor [Recovered/Resolved]
  - Thirst [Recovered/Resolved]
  - Dehydration [Recovered/Resolved]
  - Cardiac disorder [Not Recovered/Not Resolved]
  - Vascular bypass dysfunction [Recovered/Resolved]
  - Kidney infection [Unknown]
  - Chronic obstructive pulmonary disease [Unknown]
  - Multiple allergies [Unknown]
  - Blood pressure abnormal [Not Recovered/Not Resolved]
  - Arthralgia [Recovered/Resolved]
  - Blood cholesterol increased [Unknown]
  - Dyspepsia [Not Recovered/Not Resolved]
